FAERS Safety Report 13625911 (Version 3)
Quarter: 2017Q3

REPORT INFORMATION
  Report Type: Report from Study
  Country: US (occurrence: US)
  Receive Date: 20170607
  Receipt Date: 20170810
  Transmission Date: 20171127
  Serious: Yes (Death, Hospitalization, Other)
  Sender: FDA-Public Use
  Company Number: US-ACADIA PHARMACEUTICALS INC.-ACA-2017-003657

PATIENT
  Age: 68 Year
  Sex: Male

DRUGS (2)
  1. NUPLAZID [Suspect]
     Active Substance: PIMAVANSERIN TARTRATE
     Indication: PARKINSON^S DISEASE
     Dosage: 34 MG, QD
     Route: 048
     Dates: start: 20161103
  2. INSULIN, UNSPECIFIED [Suspect]
     Active Substance: INSULIN NOS
     Indication: METABOLIC DISORDER

REACTIONS (2)
  - Hyperinsulinaemic hypoglycaemia [Unknown]
  - Death [Fatal]

NARRATIVE: CASE EVENT DATE: 20170521
